FAERS Safety Report 18194952 (Version 1)
Quarter: 2020Q3

REPORT INFORMATION
  Report Type: Spontaneous
  Country: SI (occurrence: SI)
  Receive Date: 20200825
  Receipt Date: 20200825
  Transmission Date: 20201103
  Serious: Yes (Other)
  Sender: FDA-Public Use
  Company Number: NVSC2020SI234413

PATIENT
  Age: 21 Year
  Sex: Female
  Weight: 146 kg

DRUGS (5)
  1. DALTEPARIN SODIUM [Suspect]
     Active Substance: DALTEPARIN SODIUM
     Indication: VENOUS THROMBOSIS IN PREGNANCY
     Dosage: 15000 IU, BID
     Route: 065
  2. ARGATROBAN. [Suspect]
     Active Substance: ARGATROBAN
     Indication: HEPARIN-INDUCED THROMBOCYTOPENIA
     Dosage: UNK
     Route: 065
  3. FONDAPARINUX [Suspect]
     Active Substance: FONDAPARINUX
     Indication: VENOUS THROMBOSIS IN PREGNANCY
     Dosage: 12.5 MG, QD
     Route: 065
  4. WARFARIN [Suspect]
     Active Substance: WARFARIN
     Indication: VENOUS THROMBOSIS IN PREGNANCY
     Dosage: 33 MG, QW
     Route: 065
  5. WARFARIN POTASSIUM [Suspect]
     Active Substance: WARFARIN POTASSIUM
     Indication: VENOUS THROMBOSIS IN PREGNANCY
     Dosage: UNK
     Route: 065

REACTIONS (3)
  - Uterine atony [Unknown]
  - Intrapartum haemorrhage [Unknown]
  - Maternal exposure during pregnancy [Unknown]
